FAERS Safety Report 8241165-3 (Version None)
Quarter: 2012Q1

REPORT INFORMATION
  Report Type: 
  Country: None (occurrence: None)
  Receive Date: 20120328
  Receipt Date: 20120214
  Transmission Date: 20120608
  Serious: Yes (Other)
  Sender: FDA-Public Use
  Company Number: DE-B.I. PHARMACEUTICALS,INC./RIDGEFIELD-2012-DE-00468DE

PATIENT
  Age: 52 Year
  Sex: Male
  Weight: 94 kg

DRUGS (4)
  1. BISOPROLOL FUMARATE [Concomitant]
  2. TORSEMIDE [Concomitant]
  3. PRADAXA [Suspect]
     Indication: ATRIAL FIBRILLATION
     Dosage: 300 MG
     Dates: start: 20110901
  4. NEXIUM [Concomitant]

REACTIONS (3)
  - POST PROCEDURAL HAEMATOMA [None]
  - HAEMATOMA [None]
  - CEREBROVASCULAR ACCIDENT [None]
